FAERS Safety Report 8773578 (Version 17)
Quarter: 2013Q4

REPORT INFORMATION
  Report Type: Report from Study
  Country: CA (occurrence: CA)
  Receive Date: 20120907
  Receipt Date: 20131118
  Transmission Date: 20140711
  Serious: Yes (Other)
  Sender: FDA-Public Use
  Company Number: PHHY2012CA009975

PATIENT
  Age: 84 Year
  Sex: Female

DRUGS (10)
  1. SANDOSTATIN LAR [Suspect]
     Indication: METASTATIC CARCINOID TUMOUR
     Dosage: 30 MG, BIW
     Route: 030
     Dates: start: 20060119, end: 20070206
  2. SANDOSTATIN LAR [Suspect]
     Dosage: 30 MG, TIW
     Route: 030
     Dates: start: 20110222
  3. SANDOSTATIN LAR [Suspect]
     Dosage: 30 MG, EVERY 2 WEEKS
     Route: 030
  4. SANDOSTATIN LAR [Suspect]
     Dosage: 30 MG, EVERY 2 WEEKS
     Route: 030
     Dates: start: 20060120
  5. AFINITOR [Suspect]
     Indication: METASTATIC CARCINOID TUMOUR
     Dosage: 10 MG, QD
     Route: 048
     Dates: start: 20110415, end: 20110531
  6. AFINITOR [Suspect]
     Dosage: 10 MG, QD
     Route: 048
     Dates: start: 20110415, end: 20110505
  7. AFINITOR [Suspect]
     Dosage: 10 MG, ONCE DAILY
     Route: 048
     Dates: start: 20110415, end: 20110531
  8. SANDOSTATIN [Suspect]
     Indication: METASTATIC CARCINOID TUMOUR
     Dosage: 100 UG, TID
     Route: 058
  9. BENADRYL [Concomitant]
     Dosage: UNK UKN, UNK
  10. DIURETICS [Concomitant]
     Dosage: UNK UKN, UNK

REACTIONS (15)
  - Type 2 diabetes mellitus [Unknown]
  - Fall [Unknown]
  - Joint injury [Unknown]
  - Urinary bladder polyp [Recovering/Resolving]
  - Urinary tract infection [Unknown]
  - Nephrolithiasis [Recovering/Resolving]
  - Blood pressure systolic increased [Unknown]
  - Hypoaesthesia [Recovering/Resolving]
  - Hyperhidrosis [Recovering/Resolving]
  - Haematuria [Unknown]
  - Oedema peripheral [Recovering/Resolving]
  - Blood pressure increased [Unknown]
  - Diarrhoea [Recovering/Resolving]
  - Urticaria [Recovering/Resolving]
  - Injection site pain [Not Recovered/Not Resolved]
